FAERS Safety Report 8319473-7 (Version None)
Quarter: 2012Q2

REPORT INFORMATION
  Report Type: 
  Country: None (occurrence: None)
  Receive Date: 20120427
  Receipt Date: 20120421
  Transmission Date: 20120825
  Serious: Yes (Other)
  Sender: FDA-Public Use
  Company Number: US-JNJFOC-20111205909

PATIENT
  Sex: Male

DRUGS (3)
  1. MELATONIN [Concomitant]
     Indication: SLEEP DISORDER
     Route: 065
     Dates: start: 20111101
  2. MINOXIDIL [Suspect]
     Route: 061
  3. MINOXIDIL [Suspect]
     Indication: HAIR GROWTH ABNORMAL
     Dosage: HALF A CAPFUL
     Route: 061
     Dates: start: 20111112, end: 20111208

REACTIONS (12)
  - PRODUCT QUALITY ISSUE [None]
  - URTICARIA [None]
  - DISTURBANCE IN ATTENTION [None]
  - LYMPH NODE PAIN [None]
  - LYMPHADENOPATHY [None]
  - DYSPEPSIA [None]
  - NAUSEA [None]
  - INSOMNIA [None]
  - ALOPECIA [None]
  - HYPOAESTHESIA [None]
  - ECZEMA [None]
  - ACNE [None]
